FAERS Safety Report 5965636-5 (Version None)
Quarter: 2008Q4

REPORT INFORMATION
  Report Type: 
  Country: None (occurrence: None)
  Receive Date: 20081125
  Receipt Date: 20081117
  Transmission Date: 20090506
  Serious: Yes (Hospitalization)
  Sender: FDA-Public Use
  Company Number: US-ROCHE-597947

PATIENT
  Age: 53 Year
  Sex: Male

DRUGS (2)
  1. PEGASYS [Suspect]
     Indication: DRUG USE FOR UNKNOWN INDICATION
     Dosage: THE PATIENT WAS IN WEEK 17 OF THERAPY.
     Route: 065
     Dates: start: 20080701
  2. RIBAVIRIN [Suspect]
     Indication: DRUG USE FOR UNKNOWN INDICATION
     Dosage: THE PATIENT WAS IN WEEK 17 OF THERAPY.
     Route: 065
     Dates: start: 20080701

REACTIONS (2)
  - ANAEMIA [None]
  - RENAL FAILURE [None]
